FAERS Safety Report 14368727 (Version 8)
Quarter: 2018Q2

REPORT INFORMATION
  Report Type: Spontaneous
  Country: US (occurrence: US)
  Receive Date: 20180109
  Receipt Date: 20180507
  Transmission Date: 20180711
  Serious: Yes (Other)
  Sender: FDA-Public Use
  Company Number: US-PFIZER INC-2017415442

PATIENT
  Age: 63 Year
  Sex: Female
  Weight: 93.89 kg

DRUGS (10)
  1. IBRANCE [Suspect]
     Active Substance: PALBOCICLIB
     Indication: BREAST CANCER
     Dosage: 125 MG, CYCLIC (DAILY FOR 21 DAYS AND OFF FOR ONE WEEK)
     Route: 048
     Dates: start: 20170923
  2. WELLBUTRIN [Concomitant]
     Active Substance: BUPROPION HYDROCHLORIDE
     Indication: DEPRESSION
     Dosage: UNK
  3. BUPROPION HCL ER [Concomitant]
     Active Substance: BUPROPION HYDROCHLORIDE
     Indication: SMOKING CESSATION THERAPY
     Dosage: UNK
     Dates: start: 2011
  4. ASPIRIN. [Concomitant]
     Active Substance: ASPIRIN
     Indication: ANTICOAGULANT THERAPY
     Dosage: 81 MG, UNK
  5. BUPROPION HCL ER [Concomitant]
     Active Substance: BUPROPION HYDROCHLORIDE
     Indication: DEPRESSION
  6. OXYGEN. [Concomitant]
     Active Substance: OXYGEN
     Indication: CHRONIC OBSTRUCTIVE PULMONARY DISEASE
     Dosage: UNK(2 LITERS CONTINUOUSLY)
     Dates: start: 2013
  7. IBRANCE [Suspect]
     Active Substance: PALBOCICLIB
     Dosage: UNK, CYCLIC (EVERY DAY FOR 21 DAYS, THEN YOU ARE OFF OF IT FOR 7 DAYS)
     Route: 048
     Dates: start: 201709
  8. BABY ASPIRIN [Concomitant]
     Active Substance: ASPIRIN
     Indication: ANTICOAGULANT THERAPY
     Dosage: UNK
  9. OMEPRAZOLE. [Concomitant]
     Active Substance: OMEPRAZOLE
     Indication: ULCER
     Dosage: 40 MG, DAILY
     Route: 048
     Dates: start: 2011
  10. IBRANCE [Suspect]
     Active Substance: PALBOCICLIB
     Dosage: 125 MG, CYCLIC (DAILY FOR 28 DAYS, OFF FOR 7 DAYS)
     Route: 048
     Dates: start: 201710, end: 201804

REACTIONS (14)
  - Fatigue [Not Recovered/Not Resolved]
  - Sleep disorder [Unknown]
  - Arthralgia [Unknown]
  - Fall [Unknown]
  - Haemoglobin decreased [Recovered/Resolved]
  - Headache [Unknown]
  - Hypertrichosis [Unknown]
  - Malaise [Unknown]
  - Alopecia [Not Recovered/Not Resolved]
  - Furuncle [Recovered/Resolved]
  - Joint abscess [Recovered/Resolved]
  - Neoplasm progression [Unknown]
  - Hot flush [Not Recovered/Not Resolved]
  - Bacterial infection [Unknown]

NARRATIVE: CASE EVENT DATE: 2017
